FAERS Safety Report 5320203-1 (Version None)
Quarter: 2007Q2

REPORT INFORMATION
  Report Type: 
  Country: None (occurrence: None)
  Receive Date: 20070509
  Receipt Date: 20070504
  Transmission Date: 20071010
  Serious: Yes (Hospitalization)
  Sender: FDA-Public Use
  Company Number: A0649993A

PATIENT
  Age: 45 Year
  Sex: Female

DRUGS (7)
  1. ADVAIR DISKUS 100/50 [Suspect]
     Indication: ASTHMA
     Route: 055
     Dates: start: 20070101
  2. LANTUS [Concomitant]
  3. INSULIN [Concomitant]
  4. DEPAKOTE [Concomitant]
  5. TEGRETOL [Concomitant]
  6. LISINOPRIL [Concomitant]
  7. ASPIRIN [Concomitant]

REACTIONS (14)
  - CARDIAC DISORDER [None]
  - CEREBROVASCULAR ACCIDENT [None]
  - CHEST PAIN [None]
  - CHILLS [None]
  - CONTUSION [None]
  - DIZZINESS [None]
  - HEADACHE [None]
  - HYPOAESTHESIA [None]
  - LOSS OF CONSCIOUSNESS [None]
  - NAUSEA [None]
  - PALPITATIONS [None]
  - TREMOR [None]
  - VISION BLURRED [None]
  - VOMITING [None]
